FAERS Safety Report 5063939-2 (Version None)
Quarter: 2006Q3

REPORT INFORMATION
  Report Type: 
  Country: None (occurrence: None)
  Receive Date: 20060703
  Receipt Date: 20050927
  Transmission Date: 20061208
  Serious: No
  Sender: FDA-Public Use
  Company Number: 2005S1009539

PATIENT
  Age: 41 Year
  Sex: Female

DRUGS (7)
  1. CLOZAPINE [Suspect]
     Indication: DRUG USE FOR UNKNOWN INDICATION
     Dosage: 100 MG;HS;PO
     Route: 048
     Dates: start: 20050901
  2. IRON [Concomitant]
  3. VITAMINS NOS [Concomitant]
  4. SETRALINE HCL [Concomitant]
  5. CANDESARTAN CILEXETIL [Concomitant]
  6. LAMOTRIGINE [Concomitant]
  7. PARACETAMOL [Concomitant]

REACTIONS (1)
  - GRANULOCYTOPENIA [None]
